FAERS Safety Report 11499820 (Version 2)
Quarter: 2015Q4

REPORT INFORMATION
  Report Type: Spontaneous
  Country: US (occurrence: US)
  Receive Date: 20150914
  Receipt Date: 20151006
  Transmission Date: 20160304
  Serious: No
  Sender: FDA-Public Use
  Company Number: US-009507513-1509USA006364

PATIENT

DRUGS (1)
  1. ASMANEX [Suspect]
     Active Substance: MOMETASONE FUROATE
     Dosage: AEROSOL (EA) 220 Y, ONE INHALATION TWICE A DAY, ORAL INHALATION
     Route: 055
     Dates: start: 201401

REACTIONS (2)
  - Drug dose omission [Unknown]
  - Dementia [Unknown]
